FAERS Safety Report 21100133 (Version 1)
Quarter: 2022Q3

REPORT INFORMATION
  Report Type: Spontaneous
  Country: IT (occurrence: IT)
  Receive Date: 20220719
  Receipt Date: 20220719
  Transmission Date: 20221026
  Serious: Yes (Death, Other)
  Sender: FDA-Public Use
  Company Number: IT-FreseniusKabi-FK202210066

PATIENT
  Age: 82 Year
  Sex: Female

DRUGS (3)
  1. OXALIPLATIN [Suspect]
     Active Substance: OXALIPLATIN
     Indication: Colorectal cancer
     Dosage: BI-WEEKLY XELOX PLUS BEVACIZUMAB
  2. CAPECITABINE [Suspect]
     Active Substance: CAPECITABINE
     Indication: Colorectal cancer
     Dosage: BIWEEKLY XELOX PLUS BEVACIZUMAB
  3. BEVACIZUMAB [Suspect]
     Active Substance: BEVACIZUMAB
     Indication: Colorectal cancer
     Dosage: BI WEEKLY XELOX PLUS BEVACIZUMAB

REACTIONS (4)
  - Disease progression [Fatal]
  - Gastrointestinal toxicity [Unknown]
  - Hypertension [Unknown]
  - Asthenia [Unknown]
